FAERS Safety Report 25005217 (Version 1)
Quarter: 2025Q1

REPORT INFORMATION
  Report Type: Spontaneous
  Country: US (occurrence: None)
  Receive Date: 20250224
  Receipt Date: 20250224
  Transmission Date: 20250409
  Serious: Yes (Other)
  Sender: FDA-CTU
  Company Number: None

PATIENT
  Age: 63 Year
  Weight: 113.85 kg

DRUGS (1)
  1. JARDIANCE [Suspect]
     Active Substance: EMPAGLIFLOZIN
     Indication: Chronic kidney disease
     Dosage: FREQUENCY : DAILY;?
     Route: 048
     Dates: start: 20230710, end: 20230801

REACTIONS (1)
  - Cutaneous vasculitis [None]

NARRATIVE: CASE EVENT DATE: 20230701
